FAERS Safety Report 25019781 (Version 1)
Quarter: 2025Q1

REPORT INFORMATION
  Report Type: Spontaneous
  Country: RO (occurrence: RO)
  Receive Date: 20250227
  Receipt Date: 20250227
  Transmission Date: 20250408
  Serious: Yes (Congenital Anomaly)
  Sender: TAKEDA
  Company Number: RO-TAKEDA-2025TUS019950

PATIENT
  Age: 6 Year
  Sex: Male

DRUGS (3)
  1. ELAPRASE [Suspect]
     Active Substance: IDURSULFASE
     Indication: Mucopolysaccharidosis II
  2. ELAPRASE [Suspect]
     Active Substance: IDURSULFASE
  3. METHOTREXATE [Concomitant]
     Active Substance: METHOTREXATE

REACTIONS (1)
  - Joint injury [Recovering/Resolving]
